FAERS Safety Report 6595154-5 (Version None)
Quarter: 2010Q1

REPORT INFORMATION
  Report Type: 
  Country: None (occurrence: None)
  Receive Date: 20100212
  Receipt Date: 20100128
  Transmission Date: 20100710
  Serious: Yes (Other)
  Sender: FDA-Public Use
  Company Number: FABR-11902

PATIENT
  Age: 39 Year
  Sex: Male
  Weight: 98 kg

DRUGS (9)
  1. FABRAZYME [Suspect]
     Indication: FABRY'S DISEASE
     Dosage: 85 MG, Q2W, INTRAVENOUS
     Route: 042
     Dates: start: 20040413, end: 20070501
  2. TYLENOL [Concomitant]
  3. BENADRYL [Concomitant]
  4. DILAUDID [Concomitant]
  5. CALCIFEROL (ERGOCALCIFEROL) [Concomitant]
  6. MARINOL [Concomitant]
  7. TEGRETOL [Concomitant]
  8. LIPRAM-CR20 [Concomitant]
  9. FABRAZYME [Suspect]

REACTIONS (15)
  - BLOOD IMMUNOGLOBULIN E INCREASED [None]
  - BLOOD PRESSURE SYSTOLIC INCREASED [None]
  - CHEST DISCOMFORT [None]
  - CHILLS [None]
  - HEADACHE [None]
  - INFUSION RELATED REACTION [None]
  - LACRIMATION INCREASED [None]
  - LIP SWELLING [None]
  - NAUSEA [None]
  - OEDEMA PERIPHERAL [None]
  - PAIN IN EXTREMITY [None]
  - PARAESTHESIA [None]
  - RASH [None]
  - URTICARIA [None]
  - VOMITING [None]
